FAERS Safety Report 11180663 (Version 2)
Quarter: 2015Q4

REPORT INFORMATION
  Report Type: Report from Study
  Country: US (occurrence: US)
  Receive Date: 20150611
  Receipt Date: 20151006
  Transmission Date: 20160304
  Serious: Yes (Death)
  Sender: FDA-Public Use
  Company Number: US-SA-2015SA081820

PATIENT
  Age: 49 Year
  Sex: Male

DRUGS (2)
  1. LEUKINE [Suspect]
     Active Substance: SARGRAMOSTIM
     Indication: HEPATIC CANCER
     Route: 042
     Dates: start: 20141027, end: 20141028
  2. LEUKINE [Suspect]
     Active Substance: SARGRAMOSTIM
     Indication: NEUTROPENIA
     Route: 042
     Dates: start: 20141027, end: 20141028

REACTIONS (2)
  - Off label use [Unknown]
  - Death [Fatal]

NARRATIVE: CASE EVENT DATE: 20141027
